FAERS Safety Report 9526835 (Version 1)
Quarter: 2013Q3

REPORT INFORMATION
  Report Type: Report from Study
  Country: BR (occurrence: BR)
  Receive Date: 20130916
  Receipt Date: 20130916
  Transmission Date: 20140515
  Serious: Yes (Other)
  Sender: FDA-Public Use
  Company Number: PHHY2013BR102387

PATIENT
  Sex: Female
  Weight: 65 kg

DRUGS (7)
  1. ACLASTA [Suspect]
     Indication: OSTEOPOROSIS
     Dosage: 5 MG, UNK
     Route: 042
     Dates: start: 2012
  2. BACTRIM [Concomitant]
     Dosage: UNK UKN, UNK
     Dates: start: 2013
  3. AMLODIPINE [Concomitant]
     Dosage: UNK UKN, UNK
  4. PURAN T4 [Concomitant]
     Dosage: UNK UKN, UNK
  5. AMITRIPTYLINE [Concomitant]
     Dosage: UNK UKN, UNK
  6. ALENDRONATE [Concomitant]
     Dosage: UNK UKN, UNK
     Dates: start: 2013
  7. CALCIUM +VIT D [Concomitant]
     Dosage: UNK UKN, UNK
     Dates: start: 2013

REACTIONS (3)
  - Infection [Not Recovered/Not Resolved]
  - Inflammation [Unknown]
  - Pain [Unknown]
